FAERS Safety Report 25644412 (Version 1)
Quarter: 2025Q3

REPORT INFORMATION
  Report Type: Spontaneous
  Country: EU (occurrence: EU)
  Receive Date: 20250805
  Receipt Date: 20250805
  Transmission Date: 20251021
  Serious: Yes (Other)
  Sender: AUROBINDO
  Company Number: EU-AUROBINDO-AUR-APL-2022-048863

PATIENT
  Age: 8 Year
  Sex: Male
  Weight: 2.7 kg

DRUGS (8)
  1. HYDROCHLOROTHIAZIDE [Suspect]
     Active Substance: HYDROCHLOROTHIAZIDE
     Indication: Acute left ventricular failure
     Route: 065
  2. LISINOPRIL [Suspect]
     Active Substance: LISINOPRIL
     Indication: Acute left ventricular failure
     Route: 065
  3. FUROSEMIDE [Suspect]
     Active Substance: FUROSEMIDE
     Indication: Acute left ventricular failure
     Route: 065
  4. SPIRONOLACTONE [Suspect]
     Active Substance: SPIRONOLACTONE
     Indication: Acute left ventricular failure
     Route: 065
  5. MILRINONE [Suspect]
     Active Substance: MILRINONE
     Indication: Acute left ventricular failure
     Route: 065
  6. SUPRARENIN [Suspect]
     Active Substance: EPINEPHRINE
     Indication: Acute left ventricular failure
     Route: 065
  7. NOREPINEPHRINE BITARTRATE [Suspect]
     Active Substance: NOREPINEPHRINE BITARTRATE
     Indication: Acute left ventricular failure
     Route: 065
  8. NITRIC OXIDE [Suspect]
     Active Substance: NITRIC OXIDE
     Indication: Acute left ventricular failure
     Route: 065

REACTIONS (1)
  - Drug ineffective [Unknown]
